FAERS Safety Report 5415165-2 (Version None)
Quarter: 2007Q3

REPORT INFORMATION
  Report Type: 
  Country: None (occurrence: None)
  Receive Date: 20070815
  Receipt Date: 20070730
  Transmission Date: 20080115
  Serious: No
  Sender: FDA-Public Use
  Company Number: A0662514A

PATIENT
  Age: 74 Year
  Sex: Female

DRUGS (9)
  1. COREG CR [Suspect]
     Indication: HYPERTENSION
     Dosage: 20MG PER DAY
     Route: 048
     Dates: start: 20070514, end: 20070618
  2. ATIVAN [Concomitant]
  3. WELCHOL [Concomitant]
  4. FOSAMAX [Concomitant]
  5. INDOCIN [Concomitant]
  6. TRICOR [Concomitant]
  7. HYDRALAZINE HCL [Concomitant]
  8. MULTIVITAMIN [Concomitant]
  9. CALCIUM CHLORIDE [Concomitant]

REACTIONS (1)
  - ALOPECIA [None]
